FAERS Safety Report 10707211 (Version 1)
Quarter: 2015Q1

REPORT INFORMATION
  Report Type: Spontaneous
  Country: US (occurrence: None)
  Receive Date: 20150112
  Receipt Date: 20150112
  Transmission Date: 20150721
  Serious: No
  Sender: FDA-Public Use
  Company Number: None

PATIENT
  Age: 25 Year
  Sex: Female
  Weight: 63.5 kg

DRUGS (1)
  1. MIRENA [Suspect]
     Active Substance: LEVONORGESTREL

REACTIONS (8)
  - Scar [None]
  - Malaise [None]
  - Fungal infection [None]
  - Affective disorder [None]
  - Urinary tract infection [None]
  - Anxiety [None]
  - Acne cystic [None]
  - Dry skin [None]
